FAERS Safety Report 5382054-1 (Version None)
Quarter: 2007Q3

REPORT INFORMATION
  Report Type: 
  Country: None (occurrence: None)
  Receive Date: 20070709
  Receipt Date: 20070702
  Transmission Date: 20080115
  Serious: Yes (Life-Threatening, Hospitalization, Other)
  Sender: FDA-Public Use
  Company Number: DE-BRISTOL-MYERS SQUIBB COMPANY-13829437

PATIENT
  Age: 55 Year
  Sex: Male

DRUGS (2)
  1. ERBITUX [Suspect]
     Indication: SALIVARY GLAND CANCER STAGE IV
     Route: 042
     Dates: start: 20070625, end: 20070625
  2. FENISTIL [Suspect]
     Indication: PREMEDICATION
     Route: 042

REACTIONS (2)
  - ANAPHYLACTIC SHOCK [None]
  - ANTICHOLINERGIC SYNDROME [None]
